FAERS Safety Report 10972190 (Version 4)
Quarter: 2015Q3

REPORT INFORMATION
  Report Type: Report from Study
  Country: PL (occurrence: PL)
  Receive Date: 20150331
  Receipt Date: 20150709
  Transmission Date: 20151125
  Serious: Yes (Hospitalization, Other)
  Sender: FDA-Public Use
  Company Number: PL-GILEAD-2015-0144055

PATIENT
  Age: 54 Year
  Sex: Male
  Weight: 65 kg

DRUGS (16)
  1. PERFALGAN [Concomitant]
     Active Substance: ACETAMINOPHEN
     Indication: PYREXIA
  2. AMERTIL [Concomitant]
     Indication: PREMEDICATION
     Dosage: UNK
     Route: 048
     Dates: start: 20150304, end: 20150304
  3. OMNIC [Concomitant]
     Active Substance: TAMSULOSIN HYDROCHLORIDE
     Indication: NEPHROLITHIASIS
     Dosage: UNK
     Route: 065
     Dates: start: 20150110
  4. SYLIMAROL [Concomitant]
     Dosage: UNK
     Route: 048
     Dates: start: 20150204, end: 20150316
  5. CLATRA [Concomitant]
     Indication: URTICARIA
     Dosage: UNK
     Route: 048
     Dates: start: 20150217, end: 20150220
  6. BENDAMUSTINE [Suspect]
     Active Substance: BENDAMUSTINE
     Indication: NON-HODGKIN^S LYMPHOMA UNSPECIFIED HISTOLOGY INDOLENT
     Dosage: 80 MG, CYCLICAL
     Route: 042
     Dates: start: 20150203, end: 20150305
  7. MILURIT [Concomitant]
     Active Substance: ALLOPURINOL
     Dosage: UNK
     Route: 065
     Dates: start: 20150205
  8. AZITHROMYCIN [Concomitant]
     Active Substance: AZITHROMYCIN ANHYDROUS
     Indication: UPPER RESPIRATORY TRACT INFECTION
     Dosage: UNK
     Route: 048
     Dates: start: 20150313, end: 20150315
  9. RITUXIMAB [Suspect]
     Active Substance: RITUXIMAB
     Indication: NON-HODGKIN^S LYMPHOMA UNSPECIFIED HISTOLOGY INDOLENT
     Dosage: 375 MG, CYCLICAL
     Route: 042
     Dates: start: 20150203, end: 20150304
  10. ZEFFIX [Concomitant]
     Active Substance: LAMIVUDINE
     Dosage: UNK
     Route: 065
     Dates: start: 20150202
  11. IDELALISIB [Suspect]
     Active Substance: IDELALISIB
     Indication: NON-HODGKIN^S LYMPHOMA UNSPECIFIED HISTOLOGY INDOLENT
     Dosage: 150 MG, BID
     Route: 048
     Dates: start: 20150203, end: 20150317
  12. PERFALGAN [Concomitant]
     Active Substance: ACETAMINOPHEN
     Indication: PREMEDICATION
     Dosage: UNK
     Route: 065
     Dates: start: 20150304
  13. HYDROCORTISONE. [Concomitant]
     Active Substance: HYDROCORTISONE
     Indication: PREMEDICATION
     Dosage: UNK
     Route: 042
     Dates: start: 20150304, end: 20150304
  14. SETRONON [Concomitant]
     Dosage: UNK
     Route: 048
     Dates: start: 20140204, end: 20150316
  15. CLEMASTIN [Concomitant]
     Active Substance: CLEMASTINE
     Indication: PREMEDICATION
     Dosage: UNK
     Route: 042
     Dates: start: 20150304, end: 20150304
  16. DUOMOX                             /00249602/ [Concomitant]
     Indication: UPPER RESPIRATORY TRACT INFECTION
     Dosage: UNK
     Route: 048
     Dates: start: 20150313, end: 20150317

REACTIONS (1)
  - Cytomegalovirus hepatitis [Recovered/Resolved]

NARRATIVE: CASE EVENT DATE: 20150317
